FAERS Safety Report 16550904 (Version 1)
Quarter: 2019Q3

REPORT INFORMATION
  Report Type: Spontaneous
  Country: US (occurrence: US)
  Receive Date: 20190709
  Receipt Date: 20190709
  Transmission Date: 20191004
  Serious: Yes (Hospitalization)
  Sender: FDA-Public Use
  Company Number: None

PATIENT
  Age: 53 Year
  Sex: Male
  Weight: 91.1 kg

DRUGS (10)
  1. DAPSONE. [Concomitant]
     Active Substance: DAPSONE
  2. LEVOFLOXACIN. [Concomitant]
     Active Substance: LEVOFLOXACIN
  3. TRAMADOL. [Concomitant]
     Active Substance: TRAMADOL
  4. GABAPENTIN. [Concomitant]
     Active Substance: GABAPENTIN
  5. YESCARTA [Suspect]
     Active Substance: AXICABTAGENE CILOLEUCEL
     Indication: DIFFUSE LARGE B-CELL LYMPHOMA
     Dosage: ?          OTHER FREQUENCY:ONCE;?
     Route: 041
     Dates: start: 20190514, end: 20190514
  6. FILGRASTIM [Concomitant]
     Active Substance: FILGRASTIM
  7. LEVETRIACETAM [Concomitant]
     Active Substance: LEVETIRACETAM
  8. THIAMINE. [Concomitant]
     Active Substance: THIAMINE
  9. FAMOTIDINE. [Concomitant]
     Active Substance: FAMOTIDINE
  10. POSACONAZOLE [Concomitant]
     Active Substance: POSACONAZOLE

REACTIONS (3)
  - Cytokine release syndrome [None]
  - Pyrexia [None]
  - Neurotoxicity [None]

NARRATIVE: CASE EVENT DATE: 20190514
